FAERS Safety Report 5553729-6 (Version None)
Quarter: 2007Q4

REPORT INFORMATION
  Report Type: 
  Country: None (occurrence: None)
  Receive Date: 20071213
  Receipt Date: 20070713
  Transmission Date: 20080405
  Serious: No
  Sender: FDA-Public Use
  Company Number: US-AMGEN-KDL234227

PATIENT
  Sex: Male

DRUGS (2)
  1. ENBREL [Suspect]
     Indication: ANKYLOSING SPONDYLITIS
     Route: 058
     Dates: start: 20070305
  2. ARAVA [Concomitant]
     Dates: start: 20060101

REACTIONS (3)
  - ARTHRALGIA [None]
  - PAIN IN EXTREMITY [None]
  - SINUSITIS [None]
